FAERS Safety Report 4334102-5 (Version None)
Quarter: 2004Q2

REPORT INFORMATION
  Report Type: 
  Country: None (occurrence: None)
  Receive Date: 20040402
  Receipt Date: 20040319
  Transmission Date: 20050107
  Serious: Yes (Hospitalization)
  Sender: FDA-Public Use
  Company Number: 2004US000339

PATIENT
  Age: 16 Year
  Sex: Female

DRUGS (6)
  1. AMBISOME [Suspect]
     Indication: SYSTEMIC CANDIDA
     Dosage: 250.00 MG, UID/QD, INTRAVENOUS
     Route: 042
     Dates: start: 20040129, end: 20040218
  2. CIPROFLOXACIN [Concomitant]
  3. TARGOSID (TEICOPLANIN) [Concomitant]
  4. TAZOCIN (PIPERACILLIN SODIUM, TAZOBACTAM SODIUM) [Concomitant]
  5. PANTOPRAZOLE SODIUM [Concomitant]
  6. SUPRADYN (FERROUS CARBONATE, MAGNESIUM PHOSPHATE MONOBASIC, VITAMINS N [Concomitant]

REACTIONS (3)
  - HYPOKALAEMIA [None]
  - MYALGIA [None]
  - RHABDOMYOLYSIS [None]
